FAERS Safety Report 16904254 (Version 2)
Quarter: 2020Q1

REPORT INFORMATION
  Report Type: Spontaneous
  Country: NL (occurrence: NL)
  Receive Date: 20191010
  Receipt Date: 20200106
  Transmission Date: 20200409
  Serious: Yes (Hospitalization)
  Sender: FDA-Public Use
  Company Number: NL-ACTELION-A-CH2019-196668

PATIENT
  Age: 56 Year
  Sex: Female

DRUGS (2)
  1. OPSUMIT [Suspect]
     Active Substance: MACITENTAN
     Indication: PULMONARY HYPERTENSION
     Dosage: 10 MG, QD
     Route: 048
  2. UPTRAVI [Suspect]
     Active Substance: SELEXIPAG
     Indication: PULMONARY HYPERTENSION
     Dosage: 200 MCG, BID
     Route: 048

REACTIONS (5)
  - Hospitalisation [Unknown]
  - Headache [Unknown]
  - Nausea [Unknown]
  - Oxygen saturation increased [Unknown]
  - Myalgia [Unknown]

NARRATIVE: CASE EVENT DATE: 20191004
